FAERS Safety Report 18046857 (Version 5)
Quarter: 2021Q2

REPORT INFORMATION
  Report Type: Report from Study
  Country: ES (occurrence: ES)
  Receive Date: 20200720
  Receipt Date: 20210611
  Transmission Date: 20210717
  Serious: Yes (Hospitalization, Other)
  Sender: FDA-Public Use
  Company Number: ES-GILEAD-2020-0484043

PATIENT
  Sex: Male

DRUGS (8)
  1. ACICLOVIR [Concomitant]
     Active Substance: ACYCLOVIR
     Indication: PROPHYLAXIS
  2. IDELALISIB [Suspect]
     Active Substance: IDELALISIB
     Dosage: 150 MG, BID
     Route: 048
     Dates: start: 20181217, end: 20190322
  3. SEPTRIN [Concomitant]
     Active Substance: SULFAMETHOXAZOLE\TRIMETHOPRIM
     Route: 048
     Dates: start: 20181217, end: 20190426
  4. AUGMENTINE [AMOXICILLIN;CLAVULANIC ACID] [Concomitant]
     Active Substance: AMOXICILLIN\CLAVULANIC ACID
     Indication: PROPHYLAXIS
     Route: 048
     Dates: start: 20190115, end: 20190402
  5. ACICLOVIR [Concomitant]
     Active Substance: ACYCLOVIR
     Indication: PROPHYLAXIS
     Route: 048
     Dates: start: 20181217, end: 20190326
  6. IDELALISIB [Suspect]
     Active Substance: IDELALISIB
     Indication: FOLLICULAR LYMPHOMA
     Dosage: 150 MG, TID
     Route: 048
     Dates: start: 20181217, end: 20190411
  7. G?CSF [Concomitant]
     Active Substance: GRANULOCYTE COLONY-STIMULATING FACTOR NOS
     Indication: PROPHYLAXIS
     Route: 058
     Dates: start: 20190129, end: 20190411
  8. G?CSF [Concomitant]
     Active Substance: GRANULOCYTE COLONY-STIMULATING FACTOR NOS
     Indication: ANAEMIA PROPHYLAXIS

REACTIONS (2)
  - Renal failure [Recovered/Resolved with Sequelae]
  - Off label use [Recovered/Resolved]

NARRATIVE: CASE EVENT DATE: 20181217
